FAERS Safety Report 20819081 (Version 4)
Quarter: 2022Q2

REPORT INFORMATION
  Report Type: Spontaneous
  Country: RS (occurrence: None)
  Receive Date: 20220512
  Receipt Date: 20220520
  Transmission Date: 20220721
  Serious: Yes (Hospitalization, Other)
  Sender: FDA-Public Use
  Company Number: RS-ROCHE-3094710

PATIENT
  Age: 39 Year

DRUGS (13)
  1. RITUXIMAB [Suspect]
     Active Substance: RITUXIMAB
     Indication: B-cell lymphoma
     Dosage: EIGHT CYCLES OF R-CHOP THERAPY
     Route: 065
     Dates: start: 201501
  2. RITUXIMAB [Suspect]
     Active Substance: RITUXIMAB
     Dosage: FIRST THERAPY CYCLE PER THE POLIVY/BENDAMUSTINE/RITUXIMAB
     Route: 065
     Dates: start: 20220414, end: 20220427
  3. POLIVY [Suspect]
     Active Substance: POLATUZUMAB VEDOTIN-PIIQ
     Indication: B-cell lymphoma
     Dosage: FIRST THERAPY CYCLE PER THE POLIVY/BENDAMUSTINE/RITUXIMAB
     Route: 065
     Dates: start: 20220414, end: 20220427
  4. CYCLOPHOSPHAMIDE [Suspect]
     Active Substance: CYCLOPHOSPHAMIDE
     Indication: B-cell lymphoma
     Dosage: EIGHT CYCLES OF R-CHOP THERAPY
     Route: 065
     Dates: start: 201501
  5. CYCLOPHOSPHAMIDE [Suspect]
     Active Substance: CYCLOPHOSPHAMIDE
     Route: 065
     Dates: start: 201706
  6. CYCLOPHOSPHAMIDE\DOXORUBICIN\PREDNISONE\VINCRISTINE [Suspect]
     Active Substance: CYCLOPHOSPHAMIDE\DOXORUBICIN\PREDNISONE\VINCRISTINE
     Indication: B-cell lymphoma
     Dosage: EIGHT CYCLES OF R-CHOP THERAPY
     Route: 065
     Dates: start: 201501
  7. DEXAMETHASONE [Suspect]
     Active Substance: DEXAMETHASONE
     Indication: B-cell lymphoma
     Dosage: THREE CYCLES OF DHAP THERAPY
     Route: 065
  8. CYTARABINE [Suspect]
     Active Substance: CYTARABINE
     Indication: B-cell lymphoma
     Dosage: THREE CYCLES OF DHAP THERAPY
     Route: 065
  9. CISPLATIN [Suspect]
     Active Substance: CISPLATIN
     Indication: B-cell lymphoma
     Dosage: THREE CYCLES OF DHAP THERAPY
     Route: 065
  10. IFOSFAMIDE [Suspect]
     Active Substance: IFOSFAMIDE
     Indication: B-cell lymphoma
     Dosage: TWO COMPLETED CYCLES OF ICE THERAPY
     Route: 065
     Dates: start: 202005
  11. CARBOPLATIN [Suspect]
     Active Substance: CARBOPLATIN
     Indication: B-cell lymphoma
     Dosage: TWO COMPLETED CYCLES OF ICE THERAPY
     Route: 065
     Dates: start: 202005
  12. ETOPOSIDE [Suspect]
     Active Substance: ETOPOSIDE
     Indication: B-cell lymphoma
     Dosage: TWO COMPLETED CYCLES OF ICE THERAPY
     Route: 065
     Dates: start: 202005
  13. BENDAMUSTINE [Suspect]
     Active Substance: BENDAMUSTINE
     Indication: B-cell lymphoma
     Dosage: FIRST THERAPY CYCLE PER THE POLIVY/BENDAMUSTINE/RITUXIMAB
     Route: 065
     Dates: start: 20220414, end: 20220427

REACTIONS (2)
  - COVID-19 [Unknown]
  - B-cell lymphoma [Unknown]

NARRATIVE: CASE EVENT DATE: 20211116
